FAERS Safety Report 17243071 (Version 1)
Quarter: 2020Q1

REPORT INFORMATION
  Report Type: Spontaneous
  Country: DE (occurrence: DE)
  Receive Date: 20200107
  Receipt Date: 20200107
  Transmission Date: 20200409
  Serious: Yes (Hospitalization)
  Sender: FDA-Public Use
  Company Number: DE-TEVA-2019-DE-1162363

PATIENT
  Age: 83 Year
  Sex: Male
  Weight: 77 kg

DRUGS (6)
  1. METOPROLOL. [Concomitant]
     Active Substance: METOPROLOL
     Dosage: 23.75 MG, 1-0-0-0
  2. SPIRONOLACTONE. [Suspect]
     Active Substance: SPIRONOLACTONE
     Dosage: 25 MG, 1-0-0-0
  3. APIXABAN [Concomitant]
     Active Substance: APIXABAN
     Dosage: 5 MG, 1-0-1-0
  4. MOVICOL [Concomitant]
     Active Substance: POLYETHYLENE GLYCOL 3350\POTASSIUM CHLORIDE\SODIUM BICARBONATE\SODIUM CHLORIDE
     Dosage: 1-0-0-0 1 DOSAGE FORMS
  5. TORASEMIDE [Suspect]
     Active Substance: TORSEMIDE
     Dosage: 15 MG
  6. TILIDIN/NALOXON 50 MG/8 MG RETARDTABLETTEN [Concomitant]
     Dosage: 4/50 MG, 1-0-1-0 1 DOSAGE FORMS

REACTIONS (3)
  - Fall [Recovered/Resolved]
  - Asthenia [Recovered/Resolved]
  - Dizziness [Recovered/Resolved]
